FAERS Safety Report 4831420-9 (Version None)
Quarter: 2005Q4

REPORT INFORMATION
  Report Type: 
  Country: None (occurrence: None)
  Receive Date: 20051116
  Receipt Date: 20051116
  Transmission Date: 20060501
  Serious: Yes (Death)
  Sender: FDA-Public Use
  Company Number: None

PATIENT
  Age: 36 Year
  Sex: Male
  Weight: 75 kg

DRUGS (3)
  1. CAMPATH [Suspect]
     Indication: IMMUNOSUPPRESSION
     Dosage: TOTAL OF 8 AL DOSES IV DRIP
     Route: 041
     Dates: start: 20030801, end: 20040309
  2. MYCOPHENOLATE MOFETIL [Suspect]
     Indication: IMMUNOSUPPRESSION
     Dosage: TOTAL OF 10 DL DOSES IV DRIP
     Route: 041
     Dates: start: 20031215, end: 20050203
  3. ZENAPAX [Suspect]

REACTIONS (2)
  - ANAEMIA HAEMOLYTIC AUTOIMMUNE [None]
  - APLASIA PURE RED CELL [None]
